FAERS Safety Report 6426139-7 (Version None)
Quarter: 2009Q4

REPORT INFORMATION
  Report Type: 
  Country: None (occurrence: None)
  Receive Date: 20091023
  Receipt Date: 20091012
  Transmission Date: 20100525
  Serious: Yes (Hospitalization)
  Sender: FDA-Public Use
  Company Number: B0598922A

PATIENT
  Age: 20 Year
  Sex: Female

DRUGS (2)
  1. PAROXETINE HYDROCHLORIDE  (GENERIC) [Suspect]
     Indication: PAIN
  2. METHYLPHENIDATE HCL [Concomitant]

REACTIONS (1)
  - SEROTONIN SYNDROME [None]
